FAERS Safety Report 7452877-3 (Version None)
Quarter: 2011Q2

REPORT INFORMATION
  Report Type: 
  Country: None (occurrence: None)
  Receive Date: 20110502
  Receipt Date: 20101020
  Transmission Date: 20111010
  Serious: No
  Sender: FDA-Public Use
  Company Number: US-ASTRAZENECA-2010SE48443

PATIENT
  Age: 51 Year
  Sex: Female
  Weight: 81.2 kg

DRUGS (1)
  1. NEXIUM [Suspect]
     Route: 048
     Dates: start: 20100913, end: 20100920

REACTIONS (3)
  - PRODUCT TASTE ABNORMAL [None]
  - RETCHING [None]
  - ERUCTATION [None]
